FAERS Safety Report 8091518 (Version 2)
Quarter: 2013Q3

REPORT INFORMATION
  Report Type: Spontaneous
  Country: JP (occurrence: JP)
  Receive Date: 20110816
  Receipt Date: 20130708
  Transmission Date: 20140515
  Serious: Yes (Other)
  Sender: FDA-Public Use
  Company Number: JP-PFIZER INC-2011184263

PATIENT
  Age: 50 Year
  Sex: Male

DRUGS (6)
  1. CISPLATIN [Suspect]
     Indication: THYMOMA
     Dosage: 92.5 MG (50 MG/M2)
  2. CARBOPLATIN [Suspect]
     Indication: THYMOMA
     Dosage: AUC 6561 MG, CYCLIC;
     Route: 041
  3. DOXORUBICIN HYDROCHLORIDE [Concomitant]
     Indication: THYMOMA
     Dosage: 74 MG (40 MG/M 2), CYCLIC
  4. PACLITAXEL [Concomitant]
     Indication: THYMOMA
     Dosage: 362 MG (200 MG/M2), CYCLIC
     Route: 041
  5. VINCRISTINE SULFATE [Concomitant]
     Indication: THYMOMA
     Dosage: 1.11 MG (0.6 MG/M2), UNK
  6. CYCLOPHOSPHAMIDE [Concomitant]
     Indication: THYMOMA
     Dosage: 1295 MG (700 MG/M2), UNK

REACTIONS (1)
  - Neuropathy peripheral [Unknown]
